FAERS Safety Report 16782432 (Version 1)
Quarter: 2019Q3

REPORT INFORMATION
  Report Type: Spontaneous
  Country: US (occurrence: US)
  Receive Date: 20190906
  Receipt Date: 20190906
  Transmission Date: 20191005
  Serious: No
  Sender: FDA-Public Use
  Company Number: US-TEVA-2019-US-1103806

PATIENT
  Sex: Female

DRUGS (1)
  1. BUPROPION EXTENDED RELEASE XL TABLET [Suspect]
     Active Substance: BUPROPION HYDROCHLORIDE
     Dosage: FORM STRENGTH: 150, UNIT WAS NOT REPORTED
     Route: 065

REACTIONS (3)
  - Product substitution issue [Unknown]
  - Abdominal pain upper [Unknown]
  - Gastrointestinal disorder [Unknown]
